FAERS Safety Report 17823358 (Version 1)
Quarter: 2020Q2

REPORT INFORMATION
  Report Type: Spontaneous
  Country: US (occurrence: US)
  Receive Date: 20200523
  Receipt Date: 20200523
  Transmission Date: 20200714
  Serious: Yes (Disabling)
  Sender: FDA-Public Use
  Company Number: None

PATIENT
  Age: 78 Year
  Sex: Male
  Weight: 87.75 kg

DRUGS (5)
  1. ATORVASTATIN [Concomitant]
     Active Substance: ATORVASTATIN
  2. VITAMIN B12 [Concomitant]
     Active Substance: CYANOCOBALAMIN
  3. MICARDIS [Suspect]
     Active Substance: TELMISARTAN
     Indication: HYPERTENSION
     Dosage: ?          QUANTITY:2 TABLET(S);?
     Route: 048
  4. MICARDIS [Concomitant]
     Active Substance: TELMISARTAN
  5. ALLOPURINOIL [Concomitant]

REACTIONS (4)
  - Fatigue [None]
  - Asthma [None]
  - Erectile dysfunction [None]
  - Dry mouth [None]

NARRATIVE: CASE EVENT DATE: 20180315
